FAERS Safety Report 10279918 (Version 1)
Quarter: 2014Q3

REPORT INFORMATION
  Report Type: Spontaneous
  Country: GB (occurrence: None)
  Receive Date: 20140702
  Receipt Date: 20140702
  Transmission Date: 20150326
  Serious: Yes (Other)
  Sender: FDA-Public Use
  Company Number: AUR-APL-2014-06892

PATIENT
  Age: 11 Year
  Sex: Female

DRUGS (4)
  1. LAMOTRIGINE (LAMOTRIGINE) UNKNOWN [Suspect]
     Active Substance: LAMOTRIGINE
     Indication: PRODUCT USED FOR UNKNOWN INDICATION
  2. CLOBAZAM (CLOBAZAM) [Concomitant]
     Active Substance: CLOBAZAM
  3. PREDSOL /00016201/ (PRENISOLONE) ENEMA [Suspect]
     Active Substance: PREDNISOLONE
     Indication: PRODUCT USED FOR UNKNOWN INDICATION
  4. KEPPRA [Concomitant]
     Active Substance: LEVETIRACETAM

REACTIONS (3)
  - No therapeutic response [None]
  - Epilepsy [None]
  - Myoclonic epilepsy [None]
